FAERS Safety Report 9795752 (Version 2)
Quarter: 2014Q1

REPORT INFORMATION
  Report Type: Spontaneous
  Country: FR (occurrence: FR)
  Receive Date: 20140103
  Receipt Date: 20140103
  Transmission Date: 20141002
  Serious: Yes (Other)
  Sender: FDA-Public Use
  Company Number: FR-SA-POMP-1003040

PATIENT
  Age: 63 Year
  Sex: Female
  Weight: 98 kg

DRUGS (8)
  1. MYOZYME [Suspect]
     Indication: GLYCOGEN STORAGE DISEASE TYPE II
     Dosage: UNK
     Route: 042
     Dates: start: 20080902, end: 20131211
  2. CORTICOSTEROIDS [Concomitant]
     Indication: PREMEDICATION
  3. ANTIHISTAMINES [Concomitant]
     Indication: PREMEDICATION
  4. APROVEL [Concomitant]
     Indication: HYPERTENSION
     Dosage: ONE DOSE
  5. CHRONADALATE [Concomitant]
     Indication: HYPERTENSION
     Dosage: 1 DOSE
  6. GLUCOPHAGE [Concomitant]
     Indication: TYPE 2 DIABETES MELLITUS
     Dosage: 3 DOSES
  7. DIAMICRON [Concomitant]
     Indication: TYPE 2 DIABETES MELLITUS
     Dosage: 2 DOSES
  8. XYZAL [Concomitant]
     Indication: HYPERSENSITIVITY
     Dosage: ONE DOSE

REACTIONS (5)
  - Choking [Recovered/Resolved]
  - Back pain [Recovered/Resolved]
  - Pain in extremity [Recovered/Resolved]
  - Muscle tightness [Recovered/Resolved]
  - Chest discomfort [Recovered/Resolved]
